FAERS Safety Report 25537038 (Version 1)
Quarter: 2025Q3

REPORT INFORMATION
  Report Type: Spontaneous
  Country: TW (occurrence: TW)
  Receive Date: 20250710
  Receipt Date: 20250710
  Transmission Date: 20251021
  Serious: Yes (Other)
  Sender: ASTELLAS
  Company Number: TW-ASTELLAS-2023US006764

PATIENT
  Age: 60 Year
  Sex: Male

DRUGS (5)
  1. TAMSULOSIN HYDROCHLORIDE [Suspect]
     Active Substance: TAMSULOSIN HYDROCHLORIDE
     Indication: Lower urinary tract symptoms
     Dosage: ONE TABLET ONCE A DAY, AFTER THE BREAKFAST
     Route: 048
     Dates: start: 202206
  2. TAMSULOSIN HYDROCHLORIDE [Suspect]
     Active Substance: TAMSULOSIN HYDROCHLORIDE
     Indication: Benign prostatic hyperplasia
     Dosage: ONE TABLET ONCE A DAY
     Route: 048
     Dates: start: 202302
  3. TAMSULOSIN HYDROCHLORIDE [Suspect]
     Active Substance: TAMSULOSIN HYDROCHLORIDE
     Indication: Haematospermia
  4. MIRABEGRON [Suspect]
     Active Substance: MIRABEGRON
     Indication: Micturition urgency
     Dosage: 50 MG, ONCE DAILY (ONE TABLET ONCE A DAY, AFTER THE BREAKFAST)
     Route: 048
     Dates: start: 20230203
  5. MIRABEGRON [Suspect]
     Active Substance: MIRABEGRON
     Indication: Pollakiuria

REACTIONS (6)
  - Erectile dysfunction [Recovering/Resolving]
  - Inappropriate schedule of product administration [Unknown]
  - Off label use [Unknown]
  - Haematospermia [Recovered/Resolved]
  - Off label use [Unknown]
  - Drug ineffective [Recovering/Resolving]

NARRATIVE: CASE EVENT DATE: 20220101
